FAERS Safety Report 5151295-0 (Version None)
Quarter: 2006Q4

REPORT INFORMATION
  Report Type: 
  Country: None (occurrence: None)
  Receive Date: 20061114
  Receipt Date: 20061114
  Transmission Date: 20070319
  Serious: Yes (Other)
  Sender: FDA-Public Use
  Company Number: None

PATIENT
  Sex: Male
  Weight: 63.5036 kg

DRUGS (2)
  1. FENTANYL [Suspect]
     Indication: CANCER PAIN
     Dosage: 100 UG   Q 72 HOURS  TRANSDERMAL
     Route: 062
  2. FENTANYL [Suspect]
     Indication: PANCREATIC CARCINOMA
     Dosage: 100 UG   Q 72 HOURS  TRANSDERMAL
     Route: 062

REACTIONS (3)
  - DRUG EFFECT DECREASED [None]
  - PAIN [None]
  - PHARMACEUTICAL PRODUCT COMPLAINT [None]
